FAERS Safety Report 7449549-8 (Version None)
Quarter: 2011Q2

REPORT INFORMATION
  Report Type: 
  Country: None (occurrence: None)
  Receive Date: 20110502
  Receipt Date: 20110411
  Transmission Date: 20111010
  Serious: No
  Sender: FDA-Public Use
  Company Number: US-BAYER-2011-031635

PATIENT
  Age: 88 Year
  Sex: Female
  Weight: 68.027 kg

DRUGS (3)
  1. XANAX [Concomitant]
  2. AMBIEN [Concomitant]
  3. ALEVE (CAPLET) [Suspect]
     Dosage: 1 DF, ONCE
     Route: 048
     Dates: end: 20110410

REACTIONS (1)
  - RASH [None]
